FAERS Safety Report 14647942 (Version 1)
Quarter: 2018Q1

REPORT INFORMATION
  Report Type: Spontaneous
  Country: FR (occurrence: FR)
  Receive Date: 20180316
  Receipt Date: 20180316
  Transmission Date: 20180509
  Serious: Yes (Other)
  Sender: FDA-Public Use
  Company Number: FR-009507513-1803FRA004558

PATIENT
  Sex: Female

DRUGS (3)
  1. ISENTRESS [Suspect]
     Active Substance: RALTEGRAVIR POTASSIUM
     Dosage: UNK
     Route: 048
  2. SINTROM [Interacting]
     Active Substance: ACENOCOUMAROL
     Dosage: UNK
  3. WELLVONE [Interacting]
     Active Substance: ATOVAQUONE
     Dosage: UNK

REACTIONS (2)
  - Hypersensitivity [Unknown]
  - Therapeutic product cross-reactivity [Unknown]
